FAERS Safety Report 20071217 (Version 8)
Quarter: 2024Q1

REPORT INFORMATION
  Report Type: Spontaneous
  Country: JP (occurrence: JP)
  Receive Date: 20211115
  Receipt Date: 20240328
  Transmission Date: 20240410
  Serious: Yes (Hospitalization, Other)
  Sender: FDA-Public Use
  Company Number: JP-BRISTOL-MYERS SQUIBB COMPANY-BMS-2021-119830

PATIENT
  Age: 75 Year
  Sex: Male
  Weight: 57 kg

DRUGS (26)
  1. YERVOY [Suspect]
     Active Substance: IPILIMUMAB
     Indication: Non-small cell lung cancer recurrent
     Dosage: NO RE-ADMINISTRATION
     Route: 041
     Dates: start: 20210309, end: 20210604
  2. YERVOY [Suspect]
     Active Substance: IPILIMUMAB
     Dosage: NO RE-ADMINISTRATION
     Route: 041
     Dates: start: 20210423, end: 20210423
  3. YERVOY [Suspect]
     Active Substance: IPILIMUMAB
     Dosage: NO RE-ADMINISTRATION
     Route: 041
     Dates: start: 20210604, end: 20210604
  4. OPDIVO [Suspect]
     Active Substance: NIVOLUMAB
     Indication: Non-small cell lung cancer recurrent
     Dosage: NO RE-ADMINISTRATION
     Route: 041
     Dates: start: 20210309, end: 20210604
  5. OPDIVO [Suspect]
     Active Substance: NIVOLUMAB
     Dosage: NO RE-ADMINISTRATION
     Route: 041
     Dates: start: 20210330, end: 20210330
  6. OPDIVO [Suspect]
     Active Substance: NIVOLUMAB
     Dosage: NO RE-ADMINISTRATION
     Route: 041
     Dates: start: 20210423, end: 20210423
  7. OPDIVO [Suspect]
     Active Substance: NIVOLUMAB
     Dosage: NO RE-ADMINISTRATION
     Route: 041
     Dates: start: 20210514, end: 20210514
  8. OPDIVO [Suspect]
     Active Substance: NIVOLUMAB
     Dosage: NO RE-ADMINISTRATION
     Route: 041
     Dates: start: 20210604, end: 20210604
  9. CARBOPLATIN [Suspect]
     Active Substance: CARBOPLATIN
     Indication: Non-small cell lung cancer recurrent
     Dates: start: 20210309, end: 20210330
  10. CARBOPLATIN [Suspect]
     Active Substance: CARBOPLATIN
     Dates: start: 20210330, end: 20210330
  11. PACLITAXEL [Suspect]
     Active Substance: PACLITAXEL
     Indication: Non-small cell lung cancer recurrent
     Dates: start: 20210309, end: 20210330
  12. PACLITAXEL [Suspect]
     Active Substance: PACLITAXEL
     Dates: start: 20210330, end: 20210330
  13. VONOPRAZAN FUMARATE [Concomitant]
     Active Substance: VONOPRAZAN FUMARATE
     Indication: Product used for unknown indication
     Route: 048
  14. BELSOMRA [Concomitant]
     Active Substance: SUVOREXANT
     Indication: Product used for unknown indication
     Route: 048
  15. RUPAFIN [Concomitant]
     Active Substance: RUPATADINE FUMARATE
     Indication: Product used for unknown indication
     Route: 048
  16. MAGNESIUM OXIDE [Concomitant]
     Active Substance: MAGNESIUM OXIDE
     Indication: Product used for unknown indication
     Route: 048
  17. MAGNESIUM OXIDE [Concomitant]
     Active Substance: MAGNESIUM OXIDE
     Route: 048
  18. AMLODIPINE [Concomitant]
     Active Substance: AMLODIPINE BESYLATE
     Indication: Product used for unknown indication
     Route: 048
  19. DOXAZOSIN [Concomitant]
     Active Substance: DOXAZOSIN MESYLATE
     Indication: Product used for unknown indication
     Route: 048
  20. OLMESARTAN [Concomitant]
     Active Substance: OLMESARTAN
     Indication: Product used for unknown indication
     Route: 048
  21. URSODIOL [Concomitant]
     Active Substance: URSODIOL
     Indication: Product used for unknown indication
     Route: 048
  22. URSODIOL [Concomitant]
     Active Substance: URSODIOL
     Route: 048
  23. PREGABALIN [Concomitant]
     Active Substance: PREGABALIN
     Indication: Product used for unknown indication
     Route: 048
  24. THEO-DUR [Concomitant]
     Active Substance: THEOPHYLLINE ANHYDROUS
     Indication: Product used for unknown indication
     Route: 048
  25. BREZTRI [Concomitant]
     Active Substance: BUDESONIDE\FORMOTEROL\GLYCOPYRROLATE
     Indication: Product used for unknown indication
     Dosage: 2 INHALATIONS,Q12H
     Route: 055
     Dates: start: 20210405
  26. LIPIDIL [Concomitant]
     Active Substance: FENOFIBRATE
     Indication: Product used for unknown indication
     Route: 048

REACTIONS (4)
  - Drug-induced liver injury [Recovered/Resolved]
  - Interstitial lung disease [Recovered/Resolved with Sequelae]
  - Pneumonia [Recovering/Resolving]
  - Chronic obstructive pulmonary disease [Recovering/Resolving]

NARRATIVE: CASE EVENT DATE: 20210613
